FAERS Safety Report 7934423-0 (Version None)
Quarter: 2011Q4

REPORT INFORMATION
  Report Type: 
  Country: None (occurrence: None)
  Receive Date: 20111118
  Receipt Date: 20111109
  Transmission Date: 20120403
  Serious: Yes (Hospitalization, Other)
  Sender: FDA-Public Use
  Company Number: IMP_05454_2011

PATIENT
  Age: 76 Year
  Sex: Female

DRUGS (1)
  1. DIGOXIN [Suspect]
     Indication: PRODUCT USED FOR UNKNOWN INDICATION
     Dosage: (DOSE HAD BEEN REDUCED ON UNKNOWN DATE, UNKNOWN DOSAGE, DF)

REACTIONS (12)
  - DIABETIC KETOACIDOSIS [None]
  - BLOOD SODIUM DECREASED [None]
  - BLOOD PRESSURE SYSTOLIC INCREASED [None]
  - BLOOD CREATININE INCREASED [None]
  - HYPOGLYCAEMIA [None]
  - WHITE BLOOD CELL COUNT INCREASED [None]
  - DECREASED APPETITE [None]
  - WEIGHT DECREASED [None]
  - TOXICITY TO VARIOUS AGENTS [None]
  - LETHARGY [None]
  - NAUSEA [None]
  - BLOOD UREA INCREASED [None]
